FAERS Safety Report 7944601-2 (Version None)
Quarter: 2011Q4

REPORT INFORMATION
  Report Type: 
  Country: None (occurrence: None)
  Receive Date: 20111114
  Receipt Date: 20110804
  Transmission Date: 20120403
  Serious: No
  Sender: FDA-Public Use
  Company Number: 1000022701

PATIENT
  Age: 63 Year
  Sex: Female

DRUGS (18)
  1. ADVIL (IBUPROFEN) (IBUPROFEN) (IBUPROFEN) [Concomitant]
  2. BROMELAIN (BROMELAINS) (BROMELAINS) [Concomitant]
  3. OTC ALLERGY MEDICATIONS NOS (OTC ALLERGY MEDICATIONS NOS) (OTC ALLERGY [Concomitant]
  4. D-RIBOSE (D-RIBOSE) (D-RIBOSE) [Concomitant]
  5. PHOSPHATIDYLSERINE (PHOSPHATIDYLSERINE) (PHOSPHATIDYLSERINE) [Concomitant]
  6. CO-Q10 )COENZYME Q10) (COENZYME Q10) [Concomitant]
  7. FUROSEMIDE [Concomitant]
  8. VITAMIN C (VITAMIN C) (VITAMIN C) [Concomitant]
  9. L-CARNITINE (L-CARNITINE) (L-CARNITINE) [Concomitant]
  10. L-TRYPTOPHAN (TRYPTOPHAN, L-) (TRYPTOPHAN, L-) [Concomitant]
  11. LEVOXYL (LEVOTHROXINE SODIUM) (LEVOTHROXINE SODIUM) [Concomitant]
  12. CYTOMEL (LIOTHYRONINE SODIUM) (LIOTHYRONINE SODIUM) [Concomitant]
  13. VITAMIN D (VITAMIN D) (VITAMIN D) [Concomitant]
  14. SAVELLA [Suspect]
     Indication: FIBROMYALGIA
     Dosage: 12.5 MG (12.5 MG,1 IN 1 D), ORAL; 25 MG BID (25 MG, 2 IN 1 D), ORAL
     Route: 048
     Dates: start: 20110804
  15. SAVELLA [Suspect]
     Indication: FIBROMYALGIA
     Dosage: 12.5 MG (12.5 MG,1 IN 1 D), ORAL; 25 MG BID (25 MG, 2 IN 1 D), ORAL
     Route: 048
     Dates: start: 20110801, end: 20110801
  16. SAVELLA [Suspect]
     Indication: FIBROMYALGIA
     Dosage: 12.5 MG (12.5 MG,1 IN 1 D), ORAL; 25 MG BID (25 MG, 2 IN 1 D), ORAL
     Route: 048
     Dates: start: 20110802, end: 20110803
  17. ADRENAL CORTEX FRACTIONS (ADRENAL CORTEX FRACTIONS) (ADERNAL CORTEX FR [Concomitant]
  18. DHEA (PRASTERONE) (PRASTERONE) [Concomitant]

REACTIONS (5)
  - INSOMNIA [None]
  - SWEAT GLAND DISORDER [None]
  - NAUSEA [None]
  - HEADACHE [None]
  - DIZZINESS [None]
